FAERS Safety Report 23192044 (Version 9)
Quarter: 2024Q2

REPORT INFORMATION
  Report Type: Other
  Country: US (occurrence: US)
  Receive Date: 20231116
  Receipt Date: 20240620
  Transmission Date: 20240715
  Serious: No
  Sender: FDA-Public Use
  Company Number: US-TRAVERE-2023TVT00654

PATIENT
  Sex: Female

DRUGS (2)
  1. FILSPARI [Suspect]
     Active Substance: SPARSENTAN
     Indication: IgA nephropathy
     Route: 048
     Dates: start: 20231013
  2. FILSPARI [Suspect]
     Active Substance: SPARSENTAN
     Route: 048

REACTIONS (7)
  - Weight increased [None]
  - Peripheral swelling [Unknown]
  - Fatigue [None]
  - Crying [Unknown]
  - Blood potassium abnormal [Unknown]
  - Wheezing [Unknown]
  - Protein urine present [Unknown]
